FAERS Safety Report 16689693 (Version 2)
Quarter: 2019Q3

REPORT INFORMATION
  Report Type: Spontaneous
  Country: TR (occurrence: TR)
  Receive Date: 20190809
  Receipt Date: 20190814
  Transmission Date: 20191004
  Serious: Yes (Other)
  Sender: FDA-Public Use
  Company Number: TR-STRIDES ARCOLAB LIMITED-2019SP007327

PATIENT
  Age: 5 Year
  Sex: Male

DRUGS (4)
  1. PARACETAMOL [Concomitant]
     Active Substance: ACETAMINOPHEN
     Indication: PYREXIA
     Dosage: UNK, AS NEEDED FOR 3 WEEKS
     Route: 065
  2. CEFTRIAXONE. [Suspect]
     Active Substance: CEFTRIAXONE
     Indication: MENINGITIS PNEUMOCOCCAL
     Dosage: UNK
     Route: 065
  3. AMOXICILLIN/CLAVULANIC ACID [Concomitant]
     Active Substance: AMOXICILLIN\CLAVULANIC ACID
     Indication: MENINGITIS PNEUMOCOCCAL
     Dosage: UNK
     Route: 065
  4. VANCOMYCIN [Suspect]
     Active Substance: VANCOMYCIN
     Indication: MENINGITIS PNEUMOCOCCAL
     Dosage: UNK
     Route: 065

REACTIONS (9)
  - Rash pustular [Recovered/Resolved]
  - Periorbital oedema [Unknown]
  - Acute generalised exanthematous pustulosis [Recovered/Resolved]
  - Macule [Recovered/Resolved]
  - Leukocytosis [Unknown]
  - Rash [Recovered/Resolved]
  - Scrotal oedema [Unknown]
  - Erythema [Recovered/Resolved]
  - Target skin lesion [Recovered/Resolved]
